FAERS Safety Report 7866715-8 (Version None)
Quarter: 2011Q4

REPORT INFORMATION
  Report Type: 
  Country: None (occurrence: None)
  Receive Date: 20111028
  Receipt Date: 20110805
  Transmission Date: 20120403
  Serious: No
  Sender: FDA-Public Use
  Company Number: US-GLAXOSMITHKLINE-A0939913A

PATIENT
  Age: 64 Year
  Sex: Female

DRUGS (11)
  1. LOTENSIN [Concomitant]
  2. HYDROCHLOROTHIAZIDE [Concomitant]
  3. FOSAMAX [Concomitant]
  4. ZYRTEC [Concomitant]
  5. FEOSOL [Concomitant]
  6. PAXIL [Concomitant]
  7. PEPCID [Concomitant]
  8. ADVAIR DISKUS 100/50 [Suspect]
     Indication: CHRONIC OBSTRUCTIVE PULMONARY DISEASE
     Dosage: 1PUFF TWICE PER DAY
     Route: 055
     Dates: start: 20010101, end: 20110501
  9. POTASSIUM [Concomitant]
  10. REQUIP [Concomitant]
  11. SEREVENT [Concomitant]

REACTIONS (3)
  - STOMATITIS [None]
  - GINGIVAL PAIN [None]
  - CANDIDIASIS [None]
